FAERS Safety Report 24958897 (Version 1)
Quarter: 2025Q1

REPORT INFORMATION
  Report Type: Spontaneous
  Country: BR (occurrence: BR)
  Receive Date: 20250212
  Receipt Date: 20250212
  Transmission Date: 20250409
  Serious: Yes (Hospitalization, Other)
  Sender: GLAXOSMITHKLINE
  Company Number: BR-GSK-BR2025AMR015979

PATIENT

DRUGS (1)
  1. ANORO ELLIPTA [Suspect]
     Active Substance: UMECLIDINIUM BROMIDE\VILANTEROL TRIFENATATE
     Indication: Chronic obstructive pulmonary disease
     Dosage: 1 PUFF(S), QD, 62.5/25 MCG X 30 D CC INHALATION
     Dates: start: 202501

REACTIONS (1)
  - Pneumonia [Not Recovered/Not Resolved]

NARRATIVE: CASE EVENT DATE: 20250101
